FAERS Safety Report 17338714 (Version 1)
Quarter: 2020Q1

REPORT INFORMATION
  Report Type: Report from Study
  Country: FR (occurrence: FR)
  Receive Date: 20200129
  Receipt Date: 20200129
  Transmission Date: 20200409
  Serious: Yes (Other)
  Sender: FDA-Public Use
  Company Number: FR-MYLANLABS-2020M1010679

PATIENT
  Age: 6 Year
  Sex: Male

DRUGS (10)
  1. VINCRISTINE [Suspect]
     Active Substance: VINCRISTINE
     Indication: BRAF GENE MUTATION
  2. CYTARABINE. [Suspect]
     Active Substance: CYTARABINE
     Indication: LANGERHANS^ CELL HISTIOCYTOSIS
     Route: 065
  3. 6-MERCAPTOPURINE MONOHYDRATE [Suspect]
     Active Substance: MERCAPTOPURINE
     Indication: LANGERHANS^ CELL HISTIOCYTOSIS
     Dosage: RECEIVED 2 CYCLES
     Route: 065
  4. PREDNISOLONE. [Suspect]
     Active Substance: PREDNISOLONE
     Indication: BRAF GENE MUTATION
  5. PREDNISOLONE. [Suspect]
     Active Substance: PREDNISOLONE
     Indication: LANGERHANS^ CELL HISTIOCYTOSIS
     Dosage: RECEIVED 2 CYCLES
     Route: 065
  6. VINBLASTINE [Suspect]
     Active Substance: VINBLASTINE
     Indication: LANGERHANS^ CELL HISTIOCYTOSIS
     Dosage: RECEIVED 2 CYCLES
     Route: 065
  7. CYTARABINE. [Suspect]
     Active Substance: CYTARABINE
     Indication: BRAF GENE MUTATION
  8. VINBLASTINE [Suspect]
     Active Substance: VINBLASTINE
     Indication: BRAF GENE MUTATION
  9. 6-MERCAPTOPURINE MONOHYDRATE [Suspect]
     Active Substance: MERCAPTOPURINE
     Indication: BRAF GENE MUTATION
  10. VINCRISTINE [Suspect]
     Active Substance: VINCRISTINE
     Indication: LANGERHANS^ CELL HISTIOCYTOSIS
     Route: 065

REACTIONS (1)
  - Treatment failure [Unknown]
